FAERS Safety Report 9474991 (Version 2)
Quarter: 2013Q4

REPORT INFORMATION
  Report Type: Spontaneous
  Country: CH (occurrence: CH)
  Receive Date: 20130824
  Receipt Date: 20131001
  Transmission Date: 20140711
  Serious: Yes (Hospitalization)
  Sender: FDA-Public Use
  Company Number: CH-ROCHE-1265353

PATIENT
  Sex: Male

DRUGS (8)
  1. LUCENTIS [Suspect]
     Indication: DIABETIC RETINOPATHY
     Route: 050
     Dates: start: 20120103
  2. LUCENTIS [Suspect]
     Route: 050
     Dates: start: 20130424
  3. ATORVASTATIN [Concomitant]
     Dosage: DOSE: 80 UKN
     Route: 065
  4. CLOPIDOGREL [Concomitant]
     Dosage: DOSE: 75 UKN
     Route: 065
  5. DIAMICRON [Concomitant]
     Dosage: DOSE: 60 UKN
     Route: 065
  6. LISINOPRIL [Concomitant]
     Dosage: DOSE: 20 UKN
     Route: 065
  7. GALVUS MET [Concomitant]
  8. DIAMICRON [Concomitant]
     Route: 065

REACTIONS (1)
  - Cerebrovascular accident [Recovering/Resolving]
